FAERS Safety Report 7967626-X (Version None)
Quarter: 2011Q4

REPORT INFORMATION
  Report Type: 
  Country: None (occurrence: None)
  Receive Date: 20111208
  Receipt Date: 20111208
  Transmission Date: 20120403
  Serious: Yes (Hospitalization, Other)
  Sender: FDA-Public Use
  Company Number: None

PATIENT
  Age: 63 Year
  Sex: Female

DRUGS (7)
  1. ACTEMRA [Concomitant]
  2. HYDROXYCHLOROQUINE SULFATE [Concomitant]
  3. LEFLUNOMIDE [Concomitant]
  4. REVLIMID [Suspect]
     Indication: MYELODYSPLASTIC SYNDROME
     Dosage: 5 MG DAILY X21D/28D ORALLY
     Route: 048
  5. INDOMETHACIN [Concomitant]
  6. MYCOPHENOLATE MOFETIL [Concomitant]
  7. PREDNISONE TAB [Concomitant]

REACTIONS (3)
  - NAUSEA [None]
  - HYPOAESTHESIA [None]
  - DIZZINESS [None]
